FAERS Safety Report 5591266-3 (Version None)
Quarter: 2008Q1

REPORT INFORMATION
  Report Type: 
  Country: None (occurrence: None)
  Receive Date: 20080110
  Receipt Date: 20080110
  Transmission Date: 20080703
  Serious: Yes (Other)
  Sender: FDA-Public Use
  Company Number: None

PATIENT
  Age: 55 Year
  Sex: Female
  Weight: 81.6475 kg

DRUGS (1)
  1. BONIVA [Suspect]
     Indication: OSTEOPENIA
     Dosage: 1 PILL   ONCE/MONTH  PO  (DURATION: ONCE)
     Route: 048
     Dates: start: 20071214, end: 20071214

REACTIONS (8)
  - ARTHRITIS [None]
  - ASTHENIA [None]
  - CHILLS [None]
  - DELIRIUM [None]
  - INFLUENZA LIKE ILLNESS [None]
  - MYALGIA [None]
  - PYREXIA [None]
  - TREMOR [None]
